FAERS Safety Report 22389748 (Version 1)
Quarter: 2023Q2

REPORT INFORMATION
  Report Type: Spontaneous
  Country: US (occurrence: US)
  Receive Date: 20230531
  Receipt Date: 20230531
  Transmission Date: 20230722
  Serious: Yes (Other)
  Sender: FDA-Public Use
  Company Number: US-BRISTOL-MYERS SQUIBB COMPANY-2023-066992

PATIENT

DRUGS (1)
  1. CAMZYOS [Suspect]
     Active Substance: MAVACAMTEN
     Indication: Hypertrophic cardiomyopathy

REACTIONS (7)
  - Cardiac failure [Unknown]
  - Weight abnormal [Unknown]
  - Fatigue [Unknown]
  - Flatulence [Unknown]
  - Headache [Unknown]
  - Clumsiness [Unknown]
  - Brain fog [Unknown]
